FAERS Safety Report 24323681 (Version 2)
Quarter: 2024Q3

REPORT INFORMATION
  Report Type: Spontaneous
  Country: CA (occurrence: CA)
  Receive Date: 20240916
  Receipt Date: 20240922
  Transmission Date: 20241017
  Serious: Yes (Life-Threatening, Hospitalization)
  Sender: NOVARTIS
  Company Number: CA-002147023-NVSC2024CA183947

PATIENT
  Age: 61 Year
  Sex: Female

DRUGS (6)
  1. CARBAMAZEPINE [Suspect]
     Active Substance: CARBAMAZEPINE
     Indication: Suicidal ideation
     Dosage: UNK
     Route: 065
  2. LEVETIRACETAM [Concomitant]
     Active Substance: LEVETIRACETAM
     Indication: Generalised tonic-clonic seizure
     Dosage: UNK
     Route: 065
  3. LORAZEPAM [Concomitant]
     Active Substance: LORAZEPAM
     Indication: Generalised tonic-clonic seizure
     Dosage: UNK
     Route: 065
  4. PROPOFOL [Concomitant]
     Active Substance: PROPOFOL
     Indication: Generalised tonic-clonic seizure
     Dosage: UNK
     Route: 065
  5. TRANDOLAPRIL [Concomitant]
     Active Substance: TRANDOLAPRIL
     Indication: Hypertension
     Dosage: UNK
     Route: 065
  6. ROSUVASTATIN [Concomitant]
     Active Substance: ROSUVASTATIN\ROSUVASTATIN CALCIUM
     Indication: Dyslipidaemia
     Dosage: UNK
     Route: 065

REACTIONS (10)
  - Hypotension [Unknown]
  - Generalised tonic-clonic seizure [Unknown]
  - Unresponsive to stimuli [Unknown]
  - Dyskinesia [Unknown]
  - Body temperature decreased [Unknown]
  - Coma [Unknown]
  - Toxicity to various agents [Unknown]
  - Intentional product misuse [Unknown]
  - Intentional overdose [Unknown]
  - Prescription drug used without a prescription [Unknown]
